FAERS Safety Report 8431590 (Version 3)
Quarter: 2013Q2

REPORT INFORMATION
  Report Type: Spontaneous
  Country: US (occurrence: US)
  Receive Date: 20120228
  Receipt Date: 20130425
  Transmission Date: 20140414
  Serious: Yes (Hospitalization, Other)
  Sender: FDA-Public Use
  Company Number: US-PFIZER INC-2012049423

PATIENT
  Age: 14 Year
  Sex: Male

DRUGS (15)
  1. DILANTIN [Suspect]
     Dosage: 1GM INTRAVENOUS IN 250CC NORMAL SALINE
     Route: 042
     Dates: start: 19971201
  2. DILANTIN [Suspect]
     Indication: SUBARACHNOID HAEMORRHAGE
     Dosage: 200 MG, 2X/DAY
     Route: 048
     Dates: start: 19971201
  3. DILANTIN [Suspect]
     Dosage: 100 MG, 2X/DAY
     Route: 048
     Dates: end: 19971220
  4. DILANTIN [Suspect]
     Dosage: 200 MG, 2X/DAY
     Route: 048
     Dates: start: 19971206
  5. PROCARDIA [Concomitant]
     Dosage: UNK, EVERY 4 HOURS
     Route: 048
     Dates: start: 19971201
  6. SURFAK STOOL SOFTENER [Concomitant]
     Dosage: 240 MG, 1X/DAY
     Route: 048
     Dates: start: 19971201
  7. ZOFRAN [Concomitant]
     Dosage: 14 MG, UNK
     Route: 042
     Dates: start: 19971201, end: 19971202
  8. NIMOTOP [Concomitant]
     Dosage: 60 MG, EVERY 4 HRS
     Dates: start: 19971202
  9. ROCEPHIN [Concomitant]
     Dosage: 2000MG/50 ML INJECTION
     Dates: start: 19971202
  10. TYLENOL [Concomitant]
     Indication: PAIN
     Dosage: 650 MG, EVERY 4 HRS
     Route: 048
     Dates: start: 19971202, end: 19971205
  11. ZANTAC [Concomitant]
     Dosage: 50MG/3.3ML EVERY SIX HOURS
     Route: 048
     Dates: start: 19971203
  12. NEO-SYNEPHRINE [Concomitant]
     Indication: MYDRIASIS
     Dosage: ONE DROP EVERY 5MINUTES THREE TIMES FOR BOTH EYES
     Route: 047
     Dates: start: 19971203
  13. MYDRIACYL [Concomitant]
     Indication: MYDRIASIS
     Dosage: ONE DROP EVERY 5MINUTES THREE TIMES FOR BOTH EYES
     Route: 047
     Dates: start: 19971203
  14. ACETAMINOPHEN W/CODEINE [Concomitant]
     Dosage: UNK
     Dates: start: 19971205, end: 19971208
  15. NIMODIPINE [Concomitant]
     Dosage: 60 MG, 1X/DAY
     Route: 048
     Dates: start: 19971210

REACTIONS (1)
  - Stevens-Johnson syndrome [Recovering/Resolving]
